FAERS Safety Report 16079951 (Version 2)
Quarter: 2019Q1

REPORT INFORMATION
  Report Type: Spontaneous
  Country: US (occurrence: US)
  Receive Date: 20190315
  Receipt Date: 20190318
  Transmission Date: 20190418
  Serious: Yes (Death)
  Sender: FDA-Public Use
  Company Number: US-PFIZER INC-2017113600

PATIENT
  Age: 35 Year
  Sex: Male
  Weight: 170.1 kg

DRUGS (4)
  1. LYRICA [Suspect]
     Active Substance: PREGABALIN
     Indication: PAIN
  2. LYRICA [Suspect]
     Active Substance: PREGABALIN
     Indication: PERIPHERAL VENOUS DISEASE
     Dosage: 225 MG, 2X/DAY
     Route: 048
     Dates: start: 20170213
  3. LYRICA [Suspect]
     Active Substance: PREGABALIN
     Indication: NEURALGIA
     Dosage: 300 MG, UNK
  4. LYRICA [Suspect]
     Active Substance: PREGABALIN
     Indication: DEEP VEIN THROMBOSIS

REACTIONS (1)
  - Death [Fatal]
